FAERS Safety Report 8133831-5 (Version None)
Quarter: 2012Q1

REPORT INFORMATION
  Report Type: 
  Country: None (occurrence: None)
  Receive Date: 20120213
  Receipt Date: 20120207
  Transmission Date: 20120608
  Serious: Yes (Hospitalization)
  Sender: FDA-Public Use
  Company Number: MX-ABBOTT-12P-107-0902510-00

PATIENT
  Sex: Female
  Weight: 62 kg

DRUGS (1)
  1. HUMIRA [Suspect]
     Indication: RHEUMATOID ARTHRITIS
     Route: 058
     Dates: start: 20110601

REACTIONS (7)
  - FEELING ABNORMAL [None]
  - FOOD INTOLERANCE [None]
  - ANAEMIA [None]
  - DEHYDRATION [None]
  - DRUG INEFFECTIVE [None]
  - MOBILITY DECREASED [None]
  - VOMITING [None]
